FAERS Safety Report 7010994-6 (Version None)
Quarter: 2010Q3

REPORT INFORMATION
  Report Type: 
  Country: None (occurrence: None)
  Receive Date: 20100923
  Receipt Date: 20080929
  Transmission Date: 20110219
  Serious: No
  Sender: FDA-Public Use
  Company Number: US-WYE-H05639508

PATIENT
  Sex: Female

DRUGS (3)
  1. ADVIL COLD AND SINUS [Suspect]
     Indication: NASOPHARYNGITIS
     Dosage: 1 CAPLET AS NEEDED
     Route: 048
  2. ADVIL COLD AND SINUS [Suspect]
     Indication: SINUS DISORDER
  3. NEXIUM [Concomitant]

REACTIONS (3)
  - CONDITION AGGRAVATED [None]
  - DRUG EFFECT DECREASED [None]
  - GASTROOESOPHAGEAL REFLUX DISEASE [None]
